FAERS Safety Report 15573296 (Version 1)
Quarter: 2018Q4

REPORT INFORMATION
  Report Type: Spontaneous
  Country: HU (occurrence: HU)
  Receive Date: 20181101
  Receipt Date: 20181101
  Transmission Date: 20190205
  Serious: Yes (Life-Threatening, Hospitalization)
  Sender: FDA-Public Use
  Company Number: HU-ROCHE-2207987

PATIENT
  Age: 12 Year
  Sex: Female

DRUGS (3)
  1. ALGOPIRINA [Concomitant]
     Dosage: UNKOWN
     Route: 065
  2. PARACETAMOL [Concomitant]
     Active Substance: ACETAMINOPHEN
     Dosage: UNKOWN
     Route: 065
  3. CLONAZEPAM. [Suspect]
     Active Substance: CLONAZEPAM
     Indication: PRODUCT USED FOR UNKNOWN INDICATION
     Dosage: CLONAZEPAM LEVELS WERE MORE THAN TEN TIMES OVER THE THERAPEUTIC VALUE RANGE.
     Route: 065

REACTIONS (2)
  - Malaise [Recovering/Resolving]
  - Overdose [Unknown]
